FAERS Safety Report 24775015 (Version 2)
Quarter: 2025Q1

REPORT INFORMATION
  Report Type: Spontaneous
  Country: AU (occurrence: AU)
  Receive Date: 20241226
  Receipt Date: 20250128
  Transmission Date: 20250408
  Serious: Yes (Death, Other)
  Sender: JOHNSON AND JOHNSON
  Company Number: None

PATIENT
  Sex: Male

DRUGS (5)
  1. ACETAMINOPHEN [Interacting]
     Active Substance: ACETAMINOPHEN
     Indication: Accidental exposure to product
     Route: 065
  2. TAPENTADOL HYDROCHLORIDE [Interacting]
     Active Substance: TAPENTADOL HYDROCHLORIDE
     Indication: Accidental exposure to product
     Route: 065
     Dates: start: 20220503
  3. IBUPROFEN [Interacting]
     Active Substance: IBUPROFEN
     Indication: Accidental exposure to product
     Route: 065
  4. OXYCODONE HYDROCHLORIDE [Interacting]
     Active Substance: OXYCODONE HYDROCHLORIDE
     Indication: Accidental exposure to product
     Route: 065
     Dates: start: 20220503
  5. TAPENTADOL [Interacting]
     Active Substance: TAPENTADOL
     Indication: Accidental exposure to product
     Route: 065
     Dates: start: 20220503

REACTIONS (6)
  - Upper gastrointestinal haemorrhage [Fatal]
  - Accident [Fatal]
  - Arteriosclerosis [Fatal]
  - Toxicity to various agents [Fatal]
  - Drug interaction [Fatal]
  - Accidental overdose [Unknown]
